FAERS Safety Report 13932497 (Version 1)
Quarter: 2017Q3

REPORT INFORMATION
  Report Type: Report from Study
  Country: US (occurrence: US)
  Receive Date: 20170904
  Receipt Date: 20170904
  Transmission Date: 20171127
  Serious: Yes (Other)
  Sender: FDA-Public Use
  Company Number: US-SHIRE-US201718639

PATIENT
  Age: 67 Year
  Sex: Female

DRUGS (1)
  1. XIIDRA [Suspect]
     Active Substance: LIFITEGRAST
     Indication: PRODUCT USED FOR UNKNOWN INDICATION
     Route: 047

REACTIONS (5)
  - Instillation site discharge [Unknown]
  - Instillation site pain [Unknown]
  - Vision blurred [Unknown]
  - Product taste abnormal [Unknown]
  - Instillation site reaction [Unknown]

NARRATIVE: CASE EVENT DATE: 20170803
